FAERS Safety Report 10664146 (Version 2)
Quarter: 2015Q1

REPORT INFORMATION
  Report Type: Spontaneous
  Country: US (occurrence: US)
  Receive Date: 20141219
  Receipt Date: 20150209
  Transmission Date: 20150720
  Serious: No
  Sender: FDA-Public Use
  Company Number: US-009507513-1412USA004832

PATIENT
  Age: 26 Year
  Sex: Female
  Weight: 94.79 kg

DRUGS (2)
  1. NEXPLANON [Suspect]
     Active Substance: ETONOGESTREL
     Indication: CONTRACEPTION
     Dosage: 1 ROD EVERY THREE YEARS
     Route: 059
     Dates: start: 20141103, end: 20141205
  2. NEXPLANON [Suspect]
     Active Substance: ETONOGESTREL
     Dosage: UNK, OPPOSITE ARM
     Route: 059
     Dates: start: 20141219

REACTIONS (5)
  - Implant site necrosis [Recovered/Resolved]
  - Unintended pregnancy [Unknown]
  - Discomfort [Unknown]
  - Implant site pain [Unknown]
  - Device kink [Recovered/Resolved]

NARRATIVE: CASE EVENT DATE: 2014
